FAERS Safety Report 4506241-7 (Version None)
Quarter: 2004Q4

REPORT INFORMATION
  Report Type: 
  Country: None (occurrence: None)
  Receive Date: 20041119
  Receipt Date: 20041110
  Transmission Date: 20050328
  Serious: Yes (Life-Threatening, Hospitalization, Disabling)
  Sender: FDA-Public Use
  Company Number: US-MERCK-0411USA01986

PATIENT
  Age: 64 Year
  Sex: Male

DRUGS (6)
  1. VIOXX [Suspect]
     Indication: ARTHRITIS
     Route: 048
     Dates: start: 20021001, end: 20041013
  2. VITAMINS (UNSPECIFIED) [Concomitant]
     Route: 065
  3. PROTONIX [Concomitant]
     Route: 065
  4. LIPITOR [Concomitant]
     Route: 065
  5. ZOLOFT [Concomitant]
     Route: 065
  6. LORAZEPAM [Concomitant]
     Route: 065

REACTIONS (2)
  - CORONARY ARTERIAL STENT INSERTION [None]
  - CORONARY ARTERY DISEASE [None]
